FAERS Safety Report 19241067 (Version 1)
Quarter: 2021Q2

REPORT INFORMATION
  Report Type: Spontaneous
  Country: US (occurrence: US)
  Receive Date: 20210510
  Receipt Date: 20210510
  Transmission Date: 20210717
  Serious: No
  Sender: FDA-Public Use
  Company Number: None

PATIENT
  Age: 67 Year
  Sex: Male
  Weight: 110.7 kg

DRUGS (15)
  1. ZYLOPRIM [Concomitant]
     Active Substance: ALLOPURINOL
  2. TEMOZOLOMIDE. [Suspect]
     Active Substance: TEMOZOLOMIDE
     Indication: BRAIN NEOPLASM MALIGNANT
     Dosage: ?          OTHER FREQUENCY:DAILY FOR 5/28D;?
     Route: 048
     Dates: start: 20201221, end: 20210510
  3. BACTRIM DS [Concomitant]
     Active Substance: SULFAMETHOXAZOLE\TRIMETHOPRIM
  4. CARDURA [Concomitant]
     Active Substance: DOXAZOSIN MESYLATE
  5. KEPPRA [Concomitant]
     Active Substance: LEVETIRACETAM
  6. TRAMADOL. [Concomitant]
     Active Substance: TRAMADOL
  7. VIAGRA [Concomitant]
     Active Substance: SILDENAFIL CITRATE
  8. DEXAMETHASONE. [Concomitant]
     Active Substance: DEXAMETHASONE
  9. METOPROLOL. [Concomitant]
     Active Substance: METOPROLOL
  10. ALLOPURINOL. [Concomitant]
     Active Substance: ALLOPURINOL
  11. PEPCID [Concomitant]
     Active Substance: FAMOTIDINE
  12. PROCHLORPERAZINE. [Concomitant]
     Active Substance: PROCHLORPERAZINE
  13. ZOFRAN [Concomitant]
     Active Substance: ONDANSETRON HYDROCHLORIDE
  14. LISINOPRIL. [Concomitant]
     Active Substance: LISINOPRIL
  15. PRAVASTATIN. [Concomitant]
     Active Substance: PRAVASTATIN

REACTIONS (1)
  - Disease recurrence [None]

NARRATIVE: CASE EVENT DATE: 20210510
